FAERS Safety Report 4444014-4 (Version None)
Quarter: 2004Q3

REPORT INFORMATION
  Report Type: 
  Country: None (occurrence: None)
  Receive Date: 20040729
  Receipt Date: 20031223
  Transmission Date: 20050211
  Serious: Yes (Hospitalization, Other)
  Sender: FDA-Public Use
  Company Number: US-JNJFOC-20031103764

PATIENT
  Age: 32 Year
  Sex: Male
  Weight: 111.1313 kg

DRUGS (3)
  1. RISPERDAL [Suspect]
     Indication: SCHIZOPHRENIA
     Dosage: 12 MG,     IN 1 DAY, ORAL
     Route: 048
  2. HALDOL [Concomitant]
  3. COGENTIN [Concomitant]

REACTIONS (2)
  - HYPONATRAEMIA [None]
  - LOSS OF CONSCIOUSNESS [None]
